FAERS Safety Report 10558875 (Version 2)
Quarter: 2024Q3

REPORT INFORMATION
  Report Type: Spontaneous
  Country: DE (occurrence: DE)
  Receive Date: 20141101
  Receipt Date: 20240730
  Transmission Date: 20241017
  Serious: Yes (Congenital Anomaly, Other)
  Sender: AUROBINDO
  Company Number: DE-AUROBINDO-AUR-APL-2014-11225

PATIENT
  Age: 1 Day
  Sex: Male
  Weight: 3.63 kg

DRUGS (1)
  1. QUETIAPINE [Suspect]
     Active Substance: QUETIAPINE
     Indication: Schizophrenia
     Dosage: 300 MG, DAILY
     Route: 064
     Dates: start: 20120520, end: 20130222

REACTIONS (12)
  - Haemangioma congenital [Unknown]
  - Facial asymmetry [Not Recovered/Not Resolved]
  - Neonatal behavioural syndrome [Not Recovered/Not Resolved]
  - Disturbance in attention [Not Recovered/Not Resolved]
  - Agitation [Unknown]
  - Dysphonia [Unknown]
  - Hyperreflexia [Unknown]
  - Insomnia [Unknown]
  - Psychomotor hyperactivity [Unknown]
  - Muscle tightness [Unknown]
  - Photosensitivity reaction [Unknown]
  - Foetal exposure during pregnancy [Unknown]

NARRATIVE: CASE EVENT DATE: 20130222
